FAERS Safety Report 21605724 (Version 3)
Quarter: 2023Q1

REPORT INFORMATION
  Report Type: Spontaneous
  Country: US (occurrence: US)
  Receive Date: 20221116
  Receipt Date: 20230215
  Transmission Date: 20230418
  Serious: Yes (Hospitalization, Other)
  Sender: FDA-Public Use
  Company Number: US-BRISTOL-MYERS SQUIBB COMPANY-2022-138879

PATIENT
  Age: 40 Year
  Sex: Male
  Weight: 85.9 kg

DRUGS (3)
  1. BELATACEPT [Suspect]
     Active Substance: BELATACEPT
     Indication: Renal transplant
     Route: 042
  2. HERBALS [Concomitant]
     Active Substance: HERBALS
     Indication: Product used for unknown indication
     Dosage: 4 DOSES
  3. TACROLIMUS [Concomitant]
     Active Substance: TACROLIMUS
     Indication: Product used for unknown indication
     Dates: start: 20221112

REACTIONS (8)
  - Sneezing [Unknown]
  - Renal pain [Unknown]
  - Acute kidney injury [Unknown]
  - Abdominal pain [Unknown]
  - Retroperitoneal haematoma [Unknown]
  - Transplant dysfunction [Unknown]
  - Subcapsular renal haematoma [Unknown]
  - Nephropathy [Unknown]

NARRATIVE: CASE EVENT DATE: 20221107
